FAERS Safety Report 9492222 (Version 1)
Quarter: 2013Q3

REPORT INFORMATION
  Report Type: Spontaneous
  Country: US (occurrence: US)
  Receive Date: 20130830
  Receipt Date: 20130830
  Transmission Date: 20140515
  Serious: No
  Sender: FDA-Public Use
  Company Number: US-TEVA-429604USA

PATIENT
  Age: 27 Year
  Sex: Female

DRUGS (2)
  1. PLAN B ONE-STEP [Suspect]
     Indication: POST COITAL CONTRACEPTION
     Dosage: 1.5 MILLIGRAM DAILY;
     Route: 048
     Dates: start: 201304, end: 201304
  2. ANTIBIOTICS [Concomitant]
     Indication: ACNE

REACTIONS (3)
  - Amenorrhoea [Not Recovered/Not Resolved]
  - Menstruation irregular [Recovered/Resolved]
  - Pelvic pain [Not Recovered/Not Resolved]
